FAERS Safety Report 8791965 (Version 2)
Quarter: 2012Q4

REPORT INFORMATION
  Report Type: 
  Country: FR (occurrence: FR)
  Receive Date: 20120918
  Receipt Date: 20121029
  Transmission Date: 20130627
  Serious: No
  Sender: FDA-Public Use
  Company Number: FR-PFIZER INC-2012226907

PATIENT
  Age: 43 Year
  Sex: Male
  Weight: 42 kg

DRUGS (9)
  1. GENOTROPIN [Suspect]
     Dosage: 0.2 mg, 1x/day, 7jn/wk
     Route: 058
     Dates: start: 20050411
  2. GONADOTROPHINE [Concomitant]
     Indication: BLOOD LUTEINISING HORMONE DECREASED
     Dosage: UNK
     Dates: start: 20040515, end: 2005
  3. GONADOTROPHINE [Concomitant]
     Indication: BLOOD FOLLICLE STIMULATING HORMONE DECREASED
  4. GONAL-F [Concomitant]
     Indication: BLOOD LUTEINISING HORMONE DECREASED
     Dosage: UNK
     Dates: start: 20040515, end: 2005
  5. GONAL-F [Concomitant]
     Indication: BLOOD FOLLICLE STIMULATING HORMONE DECREASED
  6. PUREGON [Concomitant]
     Indication: BLOOD LUTEINISING HORMONE DECREASED
     Dosage: UNK
     Dates: start: 20040615
  7. PUREGON [Concomitant]
     Indication: BLOOD FOLLICLE STIMULATING HORMONE DECREASED
  8. ANDROTARDYL [Concomitant]
     Indication: BLOOD LUTEINISING HORMONE DECREASED
     Dosage: UNK
     Dates: start: 20040615
  9. ANDROTARDYL [Concomitant]
     Indication: BLOOD FOLLICLE STIMULATING HORMONE DECREASED

REACTIONS (1)
  - Epilepsy [Unknown]
